FAERS Safety Report 6202238-X (Version None)
Quarter: 2009Q2

REPORT INFORMATION
  Report Type: 
  Country: None (occurrence: None)
  Receive Date: 20090526
  Receipt Date: 20090512
  Transmission Date: 20091009
  Serious: No
  Sender: FDA-Public Use
  Company Number: DE-MERCK-0904DEU00105

PATIENT
  Age: 43 Year
  Sex: Male

DRUGS (3)
  1. JANUVIA [Suspect]
     Route: 048
     Dates: start: 20081216, end: 20081219
  2. JANUVIA [Suspect]
     Route: 048
     Dates: start: 20080101
  3. METFORMIN [Concomitant]
     Route: 048
     Dates: end: 20080101

REACTIONS (1)
  - ARTHRALGIA [None]
